FAERS Safety Report 8890290 (Version 1)
Quarter: 2012Q4

REPORT INFORMATION
  Report Type: 
  Country: NO (occurrence: NO)
  Receive Date: 20121107
  Receipt Date: 20121107
  Transmission Date: 20130627
  Serious: Yes (Death, Other)
  Sender: FDA-Public Use
  Company Number: NO-ELI_LILLY_AND_COMPANY-NO201211000318

PATIENT
  Age: 86 Year
  Sex: Male

DRUGS (3)
  1. ZYPREXA [Suspect]
     Indication: AGITATION
     Dosage: 10 mg, single
     Dates: start: 20120916, end: 20120916
  2. HALDOL [Concomitant]
     Indication: CONFUSIONAL STATE
     Dosage: 10 mg, UNK
     Dates: start: 20120915, end: 20120916
  3. ERYTHROMYCIN [Concomitant]

REACTIONS (4)
  - Neuroleptic malignant syndrome [Fatal]
  - Myocardial ischaemia [Not Recovered/Not Resolved]
  - Rhabdomyolysis [Not Recovered/Not Resolved]
  - Renal failure [Not Recovered/Not Resolved]
